FAERS Safety Report 9201802 (Version 1)
Quarter: 2013Q2

REPORT INFORMATION
  Report Type: Spontaneous
  Country: US (occurrence: US)
  Receive Date: 20130401
  Receipt Date: 20130401
  Transmission Date: 20140414
  Serious: Yes (Life-Threatening, Hospitalization, Other)
  Sender: FDA-Public Use
  Company Number: US-ASTRAZENECA-2013SE20723

PATIENT
  Age: 85 Year
  Sex: Female
  Weight: 67.1 kg

DRUGS (1)
  1. NEXIUM [Suspect]
     Indication: GASTROOESOPHAGEAL REFLUX DISEASE
     Route: 048
     Dates: start: 2005

REACTIONS (9)
  - Coma [Unknown]
  - Brain neoplasm [Unknown]
  - Convulsion [Unknown]
  - Performance status decreased [Unknown]
  - Dysarthria [Unknown]
  - Salivary hypersecretion [Unknown]
  - Gastrooesophageal reflux disease [Unknown]
  - Balance disorder [Unknown]
  - Drug dose omission [Unknown]
